FAERS Safety Report 7585734-2 (Version None)
Quarter: 2011Q3

REPORT INFORMATION
  Report Type: 
  Country: None (occurrence: None)
  Receive Date: 20110701
  Receipt Date: 20110622
  Transmission Date: 20111222
  Serious: Yes (Hospitalization)
  Sender: FDA-Public Use
  Company Number: JP-NOVOPROD-330592

PATIENT
  Sex: Female

DRUGS (1)
  1. PENFILL 30R CHU [Suspect]
     Indication: TYPE 1 DIABETES MELLITUS
     Dosage: 100 IU, QD
     Route: 058

REACTIONS (3)
  - RENAL IMPAIRMENT [None]
  - ANTI-INSULIN ANTIBODY POSITIVE [None]
  - DIABETES MELLITUS INADEQUATE CONTROL [None]
